FAERS Safety Report 17066957 (Version 1)
Quarter: 2019Q4

REPORT INFORMATION
  Report Type: Spontaneous
  Country: NL (occurrence: NL)
  Receive Date: 20191122
  Receipt Date: 20191122
  Transmission Date: 20200122
  Serious: Yes (Congenital Anomaly, Other)
  Sender: FDA-Public Use
  Company Number: NL-MYLANLABS-2019M1113197

PATIENT

DRUGS (9)
  1. CETIRIZINE [Suspect]
     Active Substance: CETIRIZINE HYDROCHLORIDE
     Dosage: UNKNOWN DOSE
     Route: 064
  2. MECLOZINE W/PYRIDOXINE [Suspect]
     Active Substance: MECLIZINE\PYRIDOXINE
     Indication: ANTIEMETIC SUPPORTIVE CARE
     Dosage: UNKNOWN DOSE
     Route: 064
  3. CETIRIZINE [Suspect]
     Active Substance: CETIRIZINE HYDROCHLORIDE
     Indication: PRODUCT USED FOR UNKNOWN INDICATION
     Dosage: UNKNOWN DOSE
     Route: 064
  4. LEVOCETIRIZINE [Suspect]
     Active Substance: LEVOCETIRIZINE
     Indication: VOMITING
     Dosage: UNKNOWN DOSE
     Route: 064
  5. PHENOTHIAZINE [Suspect]
     Active Substance: PHENOTHIAZINE
     Indication: NAUSEA
     Dosage: UNKNOWN DOSE
     Route: 064
  6. CYCLIZINE [Suspect]
     Active Substance: CYCLIZINE
     Indication: ANTIEMETIC SUPPORTIVE CARE
     Dosage: UNKNOWN DOSE
     Route: 064
  7. PHENOTHIAZINE [Suspect]
     Active Substance: PHENOTHIAZINE
     Indication: VOMITING
     Dosage: UNKNOWN DOSE
     Route: 064
  8. LEVOCETIRIZINE [Suspect]
     Active Substance: LEVOCETIRIZINE
     Indication: NAUSEA
     Dosage: UNKNOWN DOSE
     Route: 064
  9. MECLIZINE [Suspect]
     Active Substance: MECLIZINE HYDROCHLORIDE
     Indication: ANTIEMETIC SUPPORTIVE CARE
     Dosage: UNKNOWN DOSE
     Route: 064

REACTIONS (6)
  - Ventricular septal defect [Unknown]
  - Transposition of the great vessels [Unknown]
  - Atrioventricular septal defect [Unknown]
  - Heart disease congenital [Unknown]
  - Fallot^s tetralogy [Unknown]
  - Foetal exposure during pregnancy [Recovered/Resolved]
